FAERS Safety Report 21541181 (Version 4)
Quarter: 2022Q4

REPORT INFORMATION
  Report Type: Spontaneous
  Country: PR (occurrence: PR)
  Receive Date: 20221102
  Receipt Date: 20221209
  Transmission Date: 20230112
  Serious: No
  Sender: FDA-Public Use
  Company Number: PR-PFIZER INC-202201224406

PATIENT
  Age: 11 Year
  Sex: Male
  Weight: 49.89 kg

DRUGS (1)
  1. GENOTROPIN [Suspect]
     Active Substance: SOMATROPIN
     Indication: Hypopituitarism
     Dosage: 2 MG, 1X/DAY

REACTIONS (1)
  - Device use issue [Unknown]
